FAERS Safety Report 11349331 (Version 4)
Quarter: 2019Q2

REPORT INFORMATION
  Report Type: Report from Study
  Country: US (occurrence: US)
  Receive Date: 20150807
  Receipt Date: 20190426
  Transmission Date: 20190711
  Serious: Yes (Hospitalization)
  Sender: FDA-Public Use
  Company Number: US-ROCHE-1617994

PATIENT
  Age: 65 Year
  Sex: Male
  Weight: 95.4 kg

DRUGS (15)
  1. CLOBETASOL PROPIONATE. [Concomitant]
     Active Substance: CLOBETASOL PROPIONATE
     Route: 065
     Dates: start: 20150716, end: 20150803
  2. DAPSONE. [Concomitant]
     Active Substance: DAPSONE
     Route: 065
     Dates: start: 20150724
  3. ETODOLAC. [Concomitant]
     Active Substance: ETODOLAC
     Route: 065
     Dates: start: 20150601
  4. SERTRALINE HCL [Concomitant]
     Active Substance: SERTRALINE HYDROCHLORIDE
     Route: 065
     Dates: start: 2002
  5. ACYCLOVIR [ACICLOVIR] [Concomitant]
     Active Substance: ACYCLOVIR
     Route: 065
     Dates: start: 20150724
  6. ALLOPURINOL. [Concomitant]
     Active Substance: ALLOPURINOL
     Route: 065
     Dates: start: 20150724, end: 20150804
  7. LOTRIMIN ULTRA [Concomitant]
     Active Substance: BUTENAFINE HYDROCHLORIDE
     Route: 065
     Dates: start: 20150726, end: 20150803
  8. OBINUTUZUMAB. [Suspect]
     Active Substance: OBINUTUZUMAB
     Indication: CHRONIC LYMPHOCYTIC LEUKAEMIA
     Dosage: DATE OF MOST RECENT DOSE (900 MG) PRIOR TO SAE: 28/JUL/2015?100 MILLIGRAMS ON DAY 1 CYCLE 1 AT A DOS
     Route: 042
  9. EMLA [LIDOCAINE;PRILOCAINE] [Concomitant]
     Dosage: FOR PORT
     Route: 065
     Dates: start: 20150724
  10. EXTINA [Concomitant]
     Active Substance: KETOCONAZOLE
     Route: 065
     Dates: start: 20150726, end: 20150803
  11. SENOKOT-S [Concomitant]
     Active Substance: DOCUSATE SODIUM\SENNOSIDES
     Route: 065
     Dates: start: 20150728, end: 20150804
  12. TINACTIN [Concomitant]
     Active Substance: TOLNAFTATE
     Dosage: AEROSOL
     Route: 065
     Dates: start: 20150726, end: 20150803
  13. BENDAMUSTINE [Suspect]
     Active Substance: BENDAMUSTINE
     Indication: CHRONIC LYMPHOCYTIC LEUKAEMIA
     Dosage: DATE OF MOST RECENT DOSE (195 MG) PRIOR TO SAE: 29/JUL/2015?90 MILLIGRAMS PER SQUARE METER (MG/M2) O
     Route: 042
  14. ECONAZOLE NITRATE. [Concomitant]
     Active Substance: ECONAZOLE NITRATE
     Route: 065
     Dates: start: 20150726, end: 20150803
  15. JANUVIA [Concomitant]
     Active Substance: SITAGLIPTIN PHOSPHATE
     Route: 065
     Dates: start: 2012

REACTIONS (1)
  - Febrile neutropenia [Recovered/Resolved]

NARRATIVE: CASE EVENT DATE: 20150803
